FAERS Safety Report 10982704 (Version 2)
Quarter: 2015Q2

REPORT INFORMATION
  Report Type: Spontaneous
  Country: US (occurrence: US)
  Receive Date: 20150403
  Receipt Date: 20150505
  Transmission Date: 20150821
  Serious: Yes (Hospitalization)
  Sender: FDA-Public Use
  Company Number: US-SA-2015SA040264

PATIENT
  Age: 76 Year
  Sex: Male

DRUGS (3)
  1. AUTOPEN 24 [Concomitant]
     Active Substance: DEVICE
  2. SOLOSTAR [Concomitant]
     Active Substance: DEVICE
     Indication: TYPE 2 DIABETES MELLITUS
     Dates: start: 2015
  3. LANTUS SOLOSTAR [Suspect]
     Active Substance: INSULIN GLARGINE
     Indication: TYPE 2 DIABETES MELLITUS
     Dosage: DOSE-65 UNITS DOSE:25 UNIT(S)
     Route: 065
     Dates: start: 2015

REACTIONS (1)
  - Neoplasm malignant [Not Recovered/Not Resolved]
